FAERS Safety Report 4745525-4 (Version None)
Quarter: 2005Q3

REPORT INFORMATION
  Report Type: 
  Country: None (occurrence: None)
  Receive Date: 20050812
  Receipt Date: 20050729
  Transmission Date: 20060218
  Serious: Yes (Hospitalization)
  Sender: FDA-Public Use
  Company Number: 2004-00155

PATIENT
  Age: 71 Year
  Sex: Female
  Weight: 47.9 kg

DRUGS (11)
  1. VELCADE [Suspect]
     Indication: MULTIPLE MYELOMA
     Dosage: 2.00 MG, IV BOLUS
     Route: 040
     Dates: start: 20040329, end: 20040826
  2. ZOFRAN [Concomitant]
  3. DECADRON [Concomitant]
  4. SODIUM CHLORIDE [Concomitant]
  5. PROCRIT [Concomitant]
  6. ZOMETA [Concomitant]
  7. POTASSIUM CHLORIDE [Concomitant]
  8. MAGNESIUM (MAGNESIUM) [Concomitant]
  9. DILAUDID [Concomitant]
  10. DURAGESIC-100 [Concomitant]
  11. CALCIUM (CALCIUM) [Concomitant]

REACTIONS (16)
  - ABDOMINAL PAIN [None]
  - ANAEMIA [None]
  - BLOOD CALCIUM DECREASED [None]
  - BONE PAIN [None]
  - CONSTIPATION [None]
  - DIARRHOEA [None]
  - DUODENAL ULCER [None]
  - FATIGUE [None]
  - GASTROINTESTINAL HAEMORRHAGE [None]
  - GASTROINTESTINAL PERFORATION [None]
  - HEART RATE INCREASED [None]
  - HELICOBACTER INFECTION [None]
  - ILEUS [None]
  - NAUSEA [None]
  - PRODUCTIVE COUGH [None]
  - THROMBOCYTOPENIA [None]
